FAERS Safety Report 16030491 (Version 1)
Quarter: 2019Q1

REPORT INFORMATION
  Report Type: Spontaneous
  Country: BR (occurrence: BR)
  Receive Date: 20190304
  Receipt Date: 20190304
  Transmission Date: 20190418
  Serious: Yes (Other)
  Sender: FDA-Public Use
  Company Number: BR-PFIZER INC-2019087407

PATIENT
  Sex: Female

DRUGS (3)
  1. GEODON [Suspect]
     Active Substance: ZIPRASIDONE HYDROCHLORIDE\ZIPRASIDONE MESYLATE
     Dosage: 80 MG, 1X/DAY (2 CAPSULES OF 40MG AT NIGHT)
  2. GEODON [Suspect]
     Active Substance: ZIPRASIDONE HYDROCHLORIDE\ZIPRASIDONE MESYLATE
     Dosage: 40 MG, 2X/DAY (1 TABLET IN THE DAY AND 1 AT NIGHT)
  3. GEODON [Suspect]
     Active Substance: ZIPRASIDONE HYDROCHLORIDE\ZIPRASIDONE MESYLATE
     Indication: SCHIZOPHRENIA
     Dosage: 40 MG, 1X/DAY
     Route: 048
     Dates: start: 201810

REACTIONS (7)
  - Diabetes mellitus [Unknown]
  - Weight decreased [Unknown]
  - Insomnia [Unknown]
  - Pain in extremity [Unknown]
  - Somnolence [Unknown]
  - Abnormal behaviour [Unknown]
  - Tremor [Unknown]
